FAERS Safety Report 7625647-0 (Version None)
Quarter: 2011Q3

REPORT INFORMATION
  Report Type: 
  Country: None (occurrence: None)
  Receive Date: 20110713
  Receipt Date: 20110628
  Transmission Date: 20111222
  Serious: Yes (Other)
  Sender: FDA-Public Use
  Company Number: FR-005511

PATIENT
  Sex: Male

DRUGS (10)
  1. FIRMAGON [Suspect]
     Indication: PROSTATE CANCER METASTATIC
     Dosage: 240 MG 1X, SUBCUTANEOUS, (80 MG 1X/MONTH, SUBCUTANEOUS
     Route: 058
     Dates: start: 20110209, end: 20110209
  2. FIRMAGON [Suspect]
     Indication: PROSTATE CANCER METASTATIC
     Dosage: 240 MG 1X, SUBCUTANEOUS, (80 MG 1X/MONTH, SUBCUTANEOUS
     Route: 058
     Dates: start: 20110320
  3. ARICEPT [Concomitant]
  4. FORLAX [Concomitant]
  5. DURAGESIC-100 [Concomitant]
  6. NEXIUM [Concomitant]
  7. ASPIRIN [Concomitant]
  8. FOSAMAX [Suspect]
     Indication: PROSTATE CANCER METASTATIC
     Dosage: 70 MG 1X/WEEK, ORAL
     Route: 048
     Dates: start: 20110209
  9. OXAZEPAM [Concomitant]
  10. LASIX [Concomitant]

REACTIONS (1)
  - DEEP VEIN THROMBOSIS [None]
